FAERS Safety Report 16908629 (Version 1)
Quarter: 2019Q4

REPORT INFORMATION
  Report Type: Spontaneous
  Country: GB (occurrence: GB)
  Receive Date: 20191011
  Receipt Date: 20191011
  Transmission Date: 20200122
  Serious: Yes (Hospitalization)
  Sender: FDA-Public Use
  Company Number: GB-PFIZER INC-2019435950

PATIENT
  Age: 52 Year

DRUGS (3)
  1. OMEPRAZOLE. [Concomitant]
     Active Substance: OMEPRAZOLE
     Dosage: 20 MG, AS NEEDED EACH MORNING
  2. IBUPROFEN. [Suspect]
     Active Substance: IBUPROFEN
     Dosage: 1200 MG, DAILY
  3. AMITRIPTYLINE [Concomitant]
     Active Substance: AMITRIPTYLINE
     Dosage: 20 MG, DAILY EACH NIGHT

REACTIONS (8)
  - Lethargy [Unknown]
  - Fatigue [Unknown]
  - Dyspnoea [Unknown]
  - Erosive duodenitis [Recovering/Resolving]
  - Haemorrhage [Unknown]
  - Faeces discoloured [Unknown]
  - Anaemia [Recovering/Resolving]
  - Dyspepsia [Unknown]

NARRATIVE: CASE EVENT DATE: 20190618
